FAERS Safety Report 6464438-3 (Version None)
Quarter: 2009Q4

REPORT INFORMATION
  Report Type: 
  Country: None (occurrence: None)
  Receive Date: 20091201
  Receipt Date: 20091120
  Transmission Date: 20100525
  Serious: Yes (Other)
  Sender: FDA-Public Use
  Company Number: US-JNJFOC-20091106473

PATIENT
  Age: 58 Year
  Sex: Female
  Weight: 50.8 kg

DRUGS (5)
  1. DOXIL [Suspect]
     Indication: OVARIAN CANCER
     Dosage: 37TH CYCLE, TOTAL DOSE 62 MG
     Route: 042
  2. DARVOCET [Concomitant]
     Route: 065
  3. ATIVAN [Concomitant]
     Route: 065
  4. COMPAZINE [Concomitant]
     Route: 065
  5. LEXAPRO [Concomitant]
     Route: 065

REACTIONS (1)
  - OESOPHAGEAL ULCER [None]
